FAERS Safety Report 9349018 (Version 2)
Quarter: 2013Q3

REPORT INFORMATION
  Report Type: Report from Study
  Country: US (occurrence: US)
  Receive Date: 20130614
  Receipt Date: 20130816
  Transmission Date: 20140515
  Serious: Yes (Death, Hospitalization, Other)
  Sender: FDA-Public Use
  Company Number: US-ALEXION PHARMACEUTICALS INC.-A201301364

PATIENT
  Age: 57 Year
  Sex: Female
  Weight: 52 kg

DRUGS (9)
  1. SOLIRIS [Suspect]
     Indication: HAEMOLYTIC URAEMIC SYNDROME
     Dosage: UNK
     Route: 042
  2. NORVASC [Concomitant]
     Dosage: 10 MG, QD
     Route: 048
  3. CATAPRES [Concomitant]
     Dosage: 0.2 MG, QW
  4. LACTULOSE [Concomitant]
     Dosage: 30 ML, QID
     Route: 048
  5. MEGACE [Concomitant]
     Dosage: 525 MG, QD
     Route: 048
  6. LOPRESSOR [Concomitant]
     Dosage: 2.5 ML, BID
     Route: 048
  7. PRILOSEC [Concomitant]
     Dosage: 40 MG, QD
     Route: 048
  8. ROXICODONE [Concomitant]
     Indication: PAIN
     Dosage: 5 ML, Q4H, PRN
     Route: 048
  9. NEPHROVITE [Concomitant]
     Dosage: 1 TABLET, TID
     Route: 048

REACTIONS (13)
  - Multi-organ failure [Fatal]
  - Loss of consciousness [Not Recovered/Not Resolved]
  - Blood count abnormal [Unknown]
  - Gastrointestinal haemorrhage [Unknown]
  - Ammonia increased [Unknown]
  - Hypokalaemia [Unknown]
  - Chest pain [Unknown]
  - Vomiting [Unknown]
  - Asthenia [Unknown]
  - Bacterial test positive [Unknown]
  - Weight decreased [Unknown]
  - Tachycardia [Unknown]
  - Fatigue [Unknown]
